FAERS Safety Report 18158452 (Version 3)
Quarter: 2021Q2

REPORT INFORMATION
  Report Type: Other
  Country: US (occurrence: US)
  Receive Date: 20200817
  Receipt Date: 20210514
  Transmission Date: 20210717
  Serious: Yes (Hospitalization)
  Sender: FDA-Public Use
  Company Number: US-ROCHE-2659145

PATIENT
  Age: 53 Year
  Sex: Female

DRUGS (1)
  1. OCREVUS [Suspect]
     Active Substance: OCRELIZUMAB
     Indication: RELAPSING-REMITTING MULTIPLE SCLEROSIS
     Dosage: NEXT DOSE: 24/AUG/2017, 15/FEB/2018, 16/AUG/2018, 14/FEB/2019, 15/AUG/2019, 13/FEB/2020, 16/OCT/2020
     Route: 042
     Dates: start: 20170810

REACTIONS (1)
  - Urinary tract infection [Not Recovered/Not Resolved]

NARRATIVE: CASE EVENT DATE: 20200913
